FAERS Safety Report 20882298 (Version 1)
Quarter: 2022Q2

REPORT INFORMATION
  Report Type: Spontaneous
  Country: IT (occurrence: IT)
  Receive Date: 20220527
  Receipt Date: 20220527
  Transmission Date: 20220721
  Serious: Yes (Hospitalization)
  Sender: FDA-Public Use
  Company Number: IT-LUPIN PHARMACEUTICALS INC.-2022-07482

PATIENT
  Age: 78 Year
  Sex: Female

DRUGS (3)
  1. HYDROXYCHLOROQUINE [Suspect]
     Active Substance: HYDROXYCHLOROQUINE
     Indication: COVID-19 pneumonia
     Dosage: 200 MG, BID, FIRST LINE TREATMENT
     Route: 065
     Dates: start: 2020
  2. LOPINAVIR\RITONAVIR [Suspect]
     Active Substance: LOPINAVIR\RITONAVIR
     Indication: COVID-19 pneumonia
     Dosage: 250 MG, BID, FIRST LINE TREATMENT
     Route: 065
     Dates: start: 2020
  3. RUXOLITINIB [Suspect]
     Active Substance: RUXOLITINIB
     Indication: COVID-19 pneumonia
     Dosage: 5 MG, BID, SECOND LINE TREATMENT
     Route: 065
     Dates: start: 20200411

REACTIONS (2)
  - Drug ineffective for unapproved indication [Unknown]
  - Off label use [Unknown]

NARRATIVE: CASE EVENT DATE: 20200101
